FAERS Safety Report 7699000-8 (Version None)
Quarter: 2011Q3

REPORT INFORMATION
  Report Type: 
  Country: None (occurrence: None)
  Receive Date: 20110819
  Receipt Date: 20110805
  Transmission Date: 20111222
  Serious: Yes (Hospitalization)
  Sender: FDA-Public Use
  Company Number: GB-BAUSCH-2011BL005164

PATIENT
  Age: 59 Year
  Sex: Male

DRUGS (1)
  1. TROPICAMIDE [Suspect]
     Indication: PRODUCT USED FOR UNKNOWN INDICATION
     Route: 047
     Dates: start: 20110629, end: 20110629

REACTIONS (4)
  - BLOOD CREATINE INCREASED [None]
  - HYPERKALAEMIA [None]
  - ELECTROCARDIOGRAM T WAVE ABNORMAL [None]
  - ADVERSE DRUG REACTION [None]
